FAERS Safety Report 18172943 (Version 2)
Quarter: 2020Q4

REPORT INFORMATION
  Report Type: Report from Study
  Country: US (occurrence: US)
  Receive Date: 20200819
  Receipt Date: 20201027
  Transmission Date: 20210113
  Serious: No
  Sender: FDA-Public Use
  Company Number: NVSC2020US228958

PATIENT
  Sex: Female

DRUGS (1)
  1. PIQRAY [Suspect]
     Active Substance: ALPELISIB
     Indication: PRODUCT USED FOR UNKNOWN INDICATION
     Route: 048

REACTIONS (6)
  - Cognitive disorder [Unknown]
  - Hyperglycaemia [Unknown]
  - Disease progression [Unknown]
  - Thirst [Unknown]
  - Weight decreased [Unknown]
  - Memory impairment [Unknown]
